FAERS Safety Report 4594767-X (Version None)
Quarter: 2005Q1

REPORT INFORMATION
  Report Type: 
  Country: None (occurrence: None)
  Receive Date: 20050301
  Receipt Date: 20050225
  Transmission Date: 20050727
  Serious: Yes (Hospitalization, Congenital Anomaly)
  Sender: FDA-Public Use
  Company Number: PHRM2005FR00923

PATIENT
  Age: 0 Day
  Sex: Male
  Weight: 3 kg

DRUGS (4)
  1. HALDOL [Suspect]
     Route: 064
  2. LARGACTIL [Suspect]
     Route: 064
  3. LEPTICUR [Suspect]
     Route: 064
  4. LUDIOMIL [Suspect]
     Route: 064

REACTIONS (4)
  - ATRIAL SEPTAL DEFECT [None]
  - DRUG EXPOSURE DURING PREGNANCY [None]
  - FACIAL DYSMORPHISM [None]
  - VENTRICULAR SEPTAL DEFECT [None]
